FAERS Safety Report 20713372 (Version 1)
Quarter: 2022Q2

REPORT INFORMATION
  Report Type: Spontaneous
  Country: US (occurrence: None)
  Receive Date: 20220414
  Receipt Date: 20220414
  Transmission Date: 20220721
  Serious: Yes (Hospitalization)
  Sender: FDA-Public Use
  Company Number: None

PATIENT
  Sex: Female

DRUGS (2)
  1. BETHKIS [Suspect]
     Active Substance: TOBRAMYCIN
     Indication: Cystic fibrosis
     Dosage: 300/4 MG/ML? INHALE 4ML VIA NEBULIZER TWICE DAILY FOR 28 DAYS ON AND 28 DAYS OFF, REPEAT CYCLE
     Route: 055
  2. OMEPRAZOLE [Suspect]
     Active Substance: OMEPRAZOLE
     Indication: Cystic fibrosis
     Dosage: 1 CAP, QD PO

REACTIONS (2)
  - Pneumonia [None]
  - Therapy interrupted [None]
